FAERS Safety Report 21299204 (Version 2)
Quarter: 2022Q3

REPORT INFORMATION
  Report Type: Spontaneous
  Country: US (occurrence: US)
  Receive Date: 20220906
  Receipt Date: 20220906
  Transmission Date: 20221026
  Serious: No
  Sender: FDA-Public Use
  Company Number: US-PFIZER INC-202201117567

PATIENT
  Age: 95 Year
  Sex: Female
  Weight: 57.15 kg

DRUGS (1)
  1. ACCUPRIL [Suspect]
     Active Substance: QUINAPRIL HYDROCHLORIDE
     Indication: Hypertension
     Dosage: 20 MG, 1X/DAY (20MG ONCE A DAY IN EVENINGS BEFORE BED )

REACTIONS (1)
  - Pain [Unknown]
